FAERS Safety Report 12072302 (Version 2)
Quarter: 2016Q1

REPORT INFORMATION
  Report Type: Report from Study
  Country: CR (occurrence: CR)
  Receive Date: 20160212
  Receipt Date: 20160229
  Transmission Date: 20160526
  Serious: Yes (Other)
  Sender: FDA-Public Use
  Company Number: PHHY2016CR018492

PATIENT
  Age: 80 Year
  Sex: Male

DRUGS (1)
  1. DIOVAN [Suspect]
     Active Substance: VALSARTAN
     Indication: PRODUCT USED FOR UNKNOWN INDICATION
     Dosage: 160 MG, QD (1 TABLET)
     Route: 065
     Dates: end: 20160209

REACTIONS (3)
  - Myocardial infarction [Unknown]
  - Heart rate irregular [Unknown]
  - Anger [Unknown]
